FAERS Safety Report 8927641 (Version 3)
Quarter: 2013Q1

REPORT INFORMATION
  Report Type: Spontaneous
  Country: JP (occurrence: JP)
  Receive Date: 20121127
  Receipt Date: 20130208
  Transmission Date: 20140127
  Serious: Yes (Hospitalization)
  Sender: FDA-Public Use
  Company Number: JP-JNJFOC-20121111174

PATIENT
  Age: 60 Year
  Sex: Male
  Weight: 72 kg

DRUGS (9)
  1. REMICADE [Suspect]
     Indication: COLITIS ULCERATIVE
     Route: 042
     Dates: start: 20111202
  2. REMICADE [Suspect]
     Indication: COLITIS ULCERATIVE
     Dosage: RECEIVED 6TH DOSE
     Route: 042
     Dates: start: 20120711
  3. ASACOL [Concomitant]
     Indication: COLITIS ULCERATIVE
     Route: 048
  4. OMEPRAL [Concomitant]
     Indication: GASTROOESOPHAGEAL REFLUX DISEASE
     Route: 048
  5. ALL OTHER THERAPEUTIC AGENTS [Concomitant]
     Indication: GLOSSITIS
     Route: 048
  6. BIOFERMIN [Concomitant]
     Indication: COLITIS ULCERATIVE
     Route: 048
  7. FURSULTIAMINE [Concomitant]
     Indication: BACK PAIN
     Route: 048
  8. XYZAL [Concomitant]
     Indication: PRURITUS
     Route: 065
  9. BONALON [Concomitant]
     Indication: OSTEOPOROSIS
     Route: 048

REACTIONS (1)
  - Dermatomyositis [Recovered/Resolved]
